FAERS Safety Report 14656283 (Version 2)
Quarter: 2018Q3

REPORT INFORMATION
  Report Type: Spontaneous
  Country: IT (occurrence: IT)
  Receive Date: 20180319
  Receipt Date: 20180716
  Transmission Date: 20181010
  Serious: Yes (Hospitalization)
  Sender: FDA-Public Use
  Company Number: IT-PFIZER INC-2018108855

PATIENT
  Age: 24 Year
  Sex: Female

DRUGS (1)
  1. ZITROMAX [Suspect]
     Active Substance: AZITHROMYCIN
     Indication: ORAL INFECTION
     Dosage: 500 MG, TOTAL
     Route: 048
     Dates: start: 20170509, end: 20170509

REACTIONS (2)
  - Hyperaemia [Recovering/Resolving]
  - Pruritus generalised [Recovering/Resolving]

NARRATIVE: CASE EVENT DATE: 20170509
